FAERS Safety Report 7393696-6 (Version None)
Quarter: 2011Q2

REPORT INFORMATION
  Report Type: 
  Country: None (occurrence: None)
  Receive Date: 20110405
  Receipt Date: 20110322
  Transmission Date: 20111010
  Serious: Yes (Other)
  Sender: FDA-Public Use
  Company Number: KR-JNJFOC-20110311268

PATIENT
  Age: 21 Year
  Sex: Male

DRUGS (2)
  1. TOPAMAX [Suspect]
     Indication: EPILEPSY
     Route: 048
  2. PHENOBARBITAL SRT [Suspect]
     Indication: PRODUCT USED FOR UNKNOWN INDICATION
     Route: 065

REACTIONS (3)
  - SKIN HAEMORRHAGE [None]
  - WOUND SECRETION [None]
  - ATOPY [None]
